FAERS Safety Report 22161587 (Version 1)
Quarter: 2023Q1

REPORT INFORMATION
  Report Type: Spontaneous
  Country: CN (occurrence: CN)
  Receive Date: 20230331
  Receipt Date: 20230331
  Transmission Date: 20230417
  Serious: Yes (Other)
  Sender: FDA-Public Use
  Company Number: CN-JNJFOC-20230358246

PATIENT
  Age: 53 Year
  Sex: Male

DRUGS (2)
  1. AMIVANTAMAB [Suspect]
     Active Substance: AMIVANTAMAB
     Indication: Lung adenocarcinoma
     Route: 065
  2. AMIVANTAMAB [Suspect]
     Active Substance: AMIVANTAMAB
     Route: 065

REACTIONS (4)
  - Scab [Recovering/Resolving]
  - Rash papular [Recovering/Resolving]
  - Anal erythema [Recovering/Resolving]
  - Paronychia [Recovering/Resolving]
